FAERS Safety Report 7202496-9 (Version None)
Quarter: 2010Q4

REPORT INFORMATION
  Report Type: 
  Country: None (occurrence: None)
  Receive Date: 20101229
  Receipt Date: 20101222
  Transmission Date: 20110411
  Serious: Yes (Life-Threatening, Hospitalization)
  Sender: FDA-Public Use
  Company Number: GXKR2010GB09210

PATIENT
  Age: 75 Year
  Sex: Female
  Weight: 65 kg

DRUGS (11)
  1. TRAMADOL HCL [Suspect]
     Indication: PAIN
     Dosage: 100 MG, QID
     Route: 048
  2. REVLIMID [Suspect]
     Indication: MULTIPLE MYELOMA
     Dosage: 10 MG/DAY
     Route: 048
     Dates: start: 20100630, end: 20100715
  3. BENDROFLUMETHIAZIDE [Suspect]
     Indication: HYPERTENSION
     Dosage: 2.5 MG
     Route: 048
  4. ACYCLOVIR [Concomitant]
     Indication: MULTIPLE MYELOMA
     Dosage: 20 MG, QD
     Route: 048
     Dates: start: 20100630, end: 20100703
  5. ALLOPURINOL [Concomitant]
     Indication: GOUT
     Dosage: 3 TIMES A WEEK
     Route: 048
  6. ALLOPURINOL [Concomitant]
     Indication: PROPHYLAXIS
  7. SULFAMETHOXAZOLE AND TRIMETHOPRIM [Concomitant]
     Indication: PNEUMOCYSTIS JIROVECI PNEUMONIA
     Dosage: 150 MG, BID
     Route: 048
  8. SULFAMETHOXAZOLE AND TRIMETHOPRIM [Concomitant]
     Indication: PROPHYLAXIS
  9. DEXAMETHASONE [Concomitant]
     Indication: PROPHYLAXIS
     Dosage: 300 MG, QD
     Route: 048
     Dates: start: 20100630, end: 20100715
  10. FRAGMIN [Concomitant]
     Indication: ANTIVIRAL PROPHYLAXIS
     Dosage: 400 MG, BID
     Route: 048
     Dates: start: 20100630, end: 20100715
  11. TRAMADOL HCL [Concomitant]
     Dosage: 5000 IU, QD
     Route: 058

REACTIONS (2)
  - DRUG INTERACTION [None]
  - INAPPROPRIATE ANTIDIURETIC HORMONE SECRETION [None]
